FAERS Safety Report 16297142 (Version 1)
Quarter: 2019Q2

REPORT INFORMATION
  Report Type: Report from Study
  Country: None (occurrence: BR)
  Receive Date: 20190510
  Receipt Date: 20190510
  Transmission Date: 20190711
  Serious: Yes (Hospitalization, Other)
  Sender: FDA-Public Use
  Company Number: BR-ABBVIE-19K-020-2776719-00

PATIENT
  Sex: Female

DRUGS (1)
  1. HUMIRA [Suspect]
     Active Substance: ADALIMUMAB
     Indication: CROHN^S DISEASE
     Route: 058
     Dates: start: 20150507, end: 2019

REACTIONS (6)
  - Hypophagia [Unknown]
  - Weight decreased [Unknown]
  - Urinary tract infection [Unknown]
  - Asthenia [Unknown]
  - Meningitis [Unknown]
  - Hospitalisation [Unknown]
